FAERS Safety Report 6832342-4 (Version None)
Quarter: 2010Q3

REPORT INFORMATION
  Report Type: 
  Country: None (occurrence: None)
  Receive Date: 20100712
  Receipt Date: 20100628
  Transmission Date: 20110219
  Serious: Yes (Hospitalization)
  Sender: FDA-Public Use
  Company Number: US-MYLANLABS-2010S1011439

PATIENT
  Age: 59 Year
  Sex: Female
  Weight: 73 kg

DRUGS (5)
  1. NAPROXEN [Suspect]
     Indication: ARTHRALGIA
     Route: 065
  2. HYDROCHLOROTHIAZIDE W/LOSARTAN [Suspect]
     Dosage: LOSARTAN 50MG/HYDROCHLOROTHIAZIDE 12.5MG PER DAY
     Route: 065
  3. SIMVASTATIN [Concomitant]
     Route: 065
  4. DESLORATADINE [Concomitant]
     Route: 065
  5. AMOXICILLIN AND CLAVULANATE POTASSIUM [Concomitant]
     Dosage: AMOXICILLIN 500MG/CLAVULANATE 125 MG TWICE DAILY
     Route: 065

REACTIONS (2)
  - HYPOKALAEMIA [None]
  - HYPONATRAEMIA [None]
